FAERS Safety Report 5166424-2 (Version None)
Quarter: 2006Q4

REPORT INFORMATION
  Report Type: 
  Country: None (occurrence: None)
  Receive Date: 20061207
  Receipt Date: 20061128
  Transmission Date: 20070319
  Serious: Yes (Hospitalization)
  Sender: FDA-Public Use
  Company Number: FR-JNJFOC-20061106458

PATIENT
  Age: 36 Year
  Sex: Female

DRUGS (2)
  1. REMICADE [Suspect]
     Indication: CROHN'S DISEASE
     Route: 042
  2. LEXOMIL [Concomitant]
     Indication: DEPRESSION
     Route: 065

REACTIONS (3)
  - CONVULSION [None]
  - HEAD INJURY [None]
  - SINUS DISORDER [None]
